FAERS Safety Report 10877826 (Version 1)
Quarter: 2015Q1

REPORT INFORMATION
  Report Type: Spontaneous
  Country: US (occurrence: None)
  Receive Date: 20150225
  Receipt Date: 20150225
  Transmission Date: 20150721
  Serious: Yes (Life-Threatening)
  Sender: FDA-Public Use
  Company Number: None

PATIENT
  Age: 2 Year
  Sex: Male
  Weight: 13 kg

DRUGS (3)
  1. CHILDRENS ALLERGY RELIEF (DIPHENHYDRAMINE) [Concomitant]
     Active Substance: DIPHENHYDRAMINE HYDROCHLORIDE
  2. CHILDRENS ALL DAY ALLERGY [Suspect]
     Active Substance: CETIRIZINE HYDROCHLORIDE
  3. CHILDRENS ALL DAY ALLERGY [Concomitant]
     Active Substance: CETIRIZINE HYDROCHLORIDE

REACTIONS (3)
  - Product label issue [None]
  - Product packaging issue [None]
  - Circumstance or information capable of leading to medication error [None]

NARRATIVE: CASE EVENT DATE: 20150202
